FAERS Safety Report 21690485 (Version 1)
Quarter: 2022Q4

REPORT INFORMATION
  Report Type: Report from Study
  Country: CR (occurrence: None)
  Receive Date: 20221206
  Receipt Date: 20221206
  Transmission Date: 20230112
  Serious: Yes (Other)
  Sender: FDA-Public Use
  Company Number: CR-Merck Healthcare KGaA-9370005

PATIENT
  Age: 45 Year
  Sex: Female

DRUGS (1)
  1. REBIF [Suspect]
     Active Substance: INTERFERON BETA-1A
     Indication: Multiple sclerosis
     Route: 058
     Dates: start: 20191018

REACTIONS (1)
  - Rectal cancer stage III [Recovered/Resolved]

NARRATIVE: CASE EVENT DATE: 20220609
